FAERS Safety Report 7130143-3 (Version None)
Quarter: 2010Q4

REPORT INFORMATION
  Report Type: 
  Country: None (occurrence: None)
  Receive Date: 20101201
  Receipt Date: 20101117
  Transmission Date: 20110411
  Serious: Yes (Other)
  Sender: FDA-Public Use
  Company Number: GB-RANBAXY-2009RR-25165

PATIENT
  Age: 43 Year
  Sex: Female

DRUGS (3)
  1. TOPIRAMATE [Suspect]
     Indication: MIGRAINE
     Dosage: 25 MG, QD
  2. PROPRANOLOL [Concomitant]
     Indication: MIGRAINE
     Dosage: 40 MG, QD
  3. AMITRIPTYLINE [Concomitant]
     Indication: MIGRAINE
     Dosage: 10 MG, QD

REACTIONS (3)
  - CHOROIDAL EFFUSION [None]
  - PHOTOPSIA [None]
  - RETINAL DETACHMENT [None]
